FAERS Safety Report 17741878 (Version 1)
Quarter: 2020Q2

REPORT INFORMATION
  Report Type: Spontaneous
  Country: US (occurrence: US)
  Receive Date: 20200504
  Receipt Date: 20200504
  Transmission Date: 20200714
  Serious: Yes (Hospitalization, Other)
  Sender: FDA-Public Use
  Company Number: US-ELI_LILLY_AND_COMPANY-US202004009513

PATIENT
  Age: 86 Year
  Sex: Male

DRUGS (4)
  1. LEVEMIR [Concomitant]
     Active Substance: INSULIN DETEMIR
     Indication: TYPE 2 DIABETES MELLITUS
     Dosage: 40 U, BID
  2. HUMALOG KWIKPEN [Suspect]
     Active Substance: INSULIN LISPRO
     Indication: TYPE 2 DIABETES MELLITUS
     Dosage: 8 U, UNKNOWN (WITH EACH MEAL)
     Route: 058
  3. HUMALOG KWIKPEN [Suspect]
     Active Substance: INSULIN LISPRO
     Dosage: 8 U, UNKNOWN (WITH EACH MEAL)
     Route: 058
  4. HUMALOG KWIKPEN [Suspect]
     Active Substance: INSULIN LISPRO
     Dosage: 16 U, UNKNOWN
     Route: 058

REACTIONS (7)
  - Atrial fibrillation [Unknown]
  - Blood glucose increased [Unknown]
  - Product dose omission [Unknown]
  - Pneumonia [Unknown]
  - Respiratory failure [Unknown]
  - Neoplasm malignant [Unknown]
  - Fall [Unknown]

NARRATIVE: CASE EVENT DATE: 20190616
